FAERS Safety Report 5649915-7 (Version None)
Quarter: 2008Q1

REPORT INFORMATION
  Report Type: 
  Country: None (occurrence: None)
  Receive Date: 20080131
  Receipt Date: 20071229
  Transmission Date: 20080703
  Serious: No
  Sender: FDA-Public Use
  Company Number: US200712003122

PATIENT
  Age: 60 Year
  Sex: Female
  Weight: 86.2 kg

DRUGS (7)
  1. BYETTA [Suspect]
     Indication: TYPE 2 DIABETES MELLITUS
     Dosage: 5 UG, 2/D, SUBCUTANEOUS ; 10 UG, 2/D, SUBCUTANEOUS 10 U, 2/D, SUBCUTANEOUS
     Route: 058
     Dates: start: 20070301, end: 20071101
  2. BYETTA [Suspect]
     Indication: TYPE 2 DIABETES MELLITUS
     Dosage: 5 UG, 2/D, SUBCUTANEOUS ; 10 UG, 2/D, SUBCUTANEOUS 10 U, 2/D, SUBCUTANEOUS
     Route: 058
     Dates: start: 20071101, end: 20071213
  3. BYETTA [Suspect]
     Indication: TYPE 2 DIABETES MELLITUS
     Dosage: 5 UG, 2/D, SUBCUTANEOUS ; 10 UG, 2/D, SUBCUTANEOUS 10 U, 2/D, SUBCUTANEOUS
     Route: 058
     Dates: start: 20071201
  4. BYETTA [Suspect]
  5. SYNTHROID [Concomitant]
  6. TARKA [Concomitant]
  7. ATENOLOL [Concomitant]

REACTIONS (14)
  - BLOOD CHOLESTEROL [None]
  - BLOOD GLUCOSE DECREASED [None]
  - CONFUSIONAL STATE [None]
  - DECREASED APPETITE [None]
  - DEFAECATION URGENCY [None]
  - DIARRHOEA [None]
  - FEELING ABNORMAL [None]
  - FEELING JITTERY [None]
  - HEART RATE INCREASED [None]
  - INCREASED APPETITE [None]
  - INJECTION SITE IRRITATION [None]
  - NAUSEA [None]
  - WAIST CIRCUMFERENCE INCREASED [None]
  - WEIGHT DECREASED [None]
